FAERS Safety Report 25041691 (Version 1)
Quarter: 2025Q1

REPORT INFORMATION
  Report Type: Spontaneous
  Country: US (occurrence: US)
  Receive Date: 20250305
  Receipt Date: 20250305
  Transmission Date: 20250409
  Serious: No
  Sender: MYLAN
  Company Number: US-MYLANLABS-2025M1015172

PATIENT
  Sex: Female

DRUGS (10)
  1. CELEBREX [Suspect]
     Active Substance: CELECOXIB
     Indication: Product used for unknown indication
  2. LEFLUNOMIDE [Concomitant]
     Active Substance: LEFLUNOMIDE
  3. NEBIVOLOL [Concomitant]
     Active Substance: NEBIVOLOL
  4. KEPPRA [Concomitant]
     Active Substance: LEVETIRACETAM
  5. NEXIUM [Concomitant]
     Active Substance: ESOMEPRAZOLE MAGNESIUM
  6. DULOXETINE [Concomitant]
     Active Substance: DULOXETINE
  7. HYDROXYCHLOROQUINE [Concomitant]
     Active Substance: HYDROXYCHLOROQUINE
  8. VALIUM [Concomitant]
     Active Substance: DIAZEPAM
  9. OCREVUS [Concomitant]
     Active Substance: OCRELIZUMAB
  10. LYRICA [Concomitant]
     Active Substance: PREGABALIN

REACTIONS (1)
  - Drug intolerance [Unknown]
